FAERS Safety Report 18119963 (Version 1)
Quarter: 2020Q3

REPORT INFORMATION
  Report Type: Spontaneous
  Country: CH (occurrence: CH)
  Receive Date: 20200806
  Receipt Date: 20200806
  Transmission Date: 20201103
  Serious: Yes (Other)
  Sender: FDA-Public Use
  Company Number: CH-SUN PHARMACEUTICAL INDUSTRIES LTD-2020R1-255618

PATIENT
  Age: 72 Year
  Sex: Male

DRUGS (5)
  1. DOPA [Concomitant]
     Indication: TREMOR
     Dosage: UNK
     Route: 065
  2. BENSERAZIDE [Concomitant]
     Active Substance: BENSERAZIDE
     Indication: TREMOR
     Dosage: UNK
     Route: 065
  3. LITHIUM. [Suspect]
     Active Substance: LITHIUM
     Indication: DEPRESSION
     Dosage: UNK
     Route: 065
  4. TRAZODONE [Suspect]
     Active Substance: TRAZODONE HYDROCHLORIDE
     Indication: DEPRESSION
     Dosage: 300 MILLIGRAM
     Route: 065
  5. BUPROPION. [Suspect]
     Active Substance: BUPROPION
     Indication: DEPRESSION
     Dosage: 300 MILLIGRAM
     Route: 065

REACTIONS (3)
  - Neurotoxicity [Unknown]
  - Off label use [Unknown]
  - Drug interaction [Unknown]
